FAERS Safety Report 8490700-9 (Version None)
Quarter: 2012Q3

REPORT INFORMATION
  Report Type: 
  Country: None (occurrence: None)
  Receive Date: 20120706
  Receipt Date: 20120623
  Transmission Date: 20120928
  Serious: Yes (Death, Hospitalization)
  Sender: FDA-Public Use
  Company Number: FR-PAR PHARMACEUTICAL, INC-2012SCPR004474

PATIENT

DRUGS (11)
  1. INFLIXIMAB [Suspect]
     Indication: CROHN'S DISEASE
     Dosage: UNK, UNKNOWN
     Route: 065
  2. AZATHIOPRINE [Suspect]
     Indication: CROHN'S DISEASE
     Dosage: UNK, UNKNOWN
     Route: 065
  3. PIPERACILLIN AND TAZOBACTAM [Concomitant]
     Indication: PNEUMONIA
  4. CIPROFLOXACIN EXTENDED RELEASE [Suspect]
     Indication: PNEUMONIA
  5. CORTICOSTEROIDS [Suspect]
     Indication: CROHN'S DISEASE
     Dosage: UNK, UNKNOWN
     Route: 065
  6. PIPERACILLIN AND TAZOBACTAM [Concomitant]
     Indication: SEPSIS
     Dosage: UNK, UNKNOWN
     Route: 065
  7. FLUCONAZOLE [Concomitant]
     Indication: FUNGAL INFECTION
     Dosage: UNK, UNKNOWN
     Route: 065
  8. FLUCONAZOLE [Concomitant]
     Indication: PNEUMONIA
  9. VORICONAZOLE [Concomitant]
     Indication: BRONCHOPULMONARY ASPERGILLOSIS
     Dosage: UNK, UNKNOWN
     Route: 065
     Dates: start: 20100821
  10. CIPROFLOXACIN EXTENDED RELEASE [Suspect]
     Indication: SEPSIS
     Dosage: UNK, UNKNOWN
     Route: 065
  11. CASPOFUNGIN ACETATE [Concomitant]
     Indication: BRONCHOPULMONARY ASPERGILLOSIS
     Dosage: UNK, UNKNOWN
     Route: 065
     Dates: start: 20100821

REACTIONS (2)
  - MULTI-ORGAN FAILURE [None]
  - DEATH [None]
